FAERS Safety Report 16846083 (Version 5)
Quarter: 2020Q3

REPORT INFORMATION
  Report Type: Report from Study
  Country: DE (occurrence: DE)
  Receive Date: 20190924
  Receipt Date: 20200824
  Transmission Date: 20201102
  Serious: Yes (Hospitalization, Other)
  Sender: FDA-Public Use
  Company Number: DE-EXELIXIS-XL18419022227

PATIENT
  Age: 42 Year
  Sex: Male
  Weight: 92 kg

DRUGS (11)
  1. CABOZANTINIB [Suspect]
     Active Substance: CABOZANTINIB
     Indication: RENAL CELL CARCINOMA
     Dosage: 60 MG, QD
     Route: 048
     Dates: start: 20190524, end: 20200505
  2. PANTOPRAZOL [Concomitant]
     Active Substance: PANTOPRAZOLE SODIUM
     Indication: GASTROINTESTINAL DISORDER PROPHYLAXIS
     Dosage: 20 MG, QD
     Route: 048
  3. METAMIZOL [Concomitant]
     Active Substance: METAMIZOLE SODIUM
     Indication: PAIN
     Dosage: 500 MG
     Route: 048
     Dates: start: 2019
  4. NOVALGIN (METAMIZOLE SODIUM) [Concomitant]
     Active Substance: METAMIZOLE SODIUM
     Indication: PAIN
     Dosage: UNK, QID
     Route: 048
     Dates: start: 2019
  5. FOLSAN 5 MG [Concomitant]
     Indication: FOLATE DEFICIENCY
  6. PANTOPRAZOL [Concomitant]
     Active Substance: PANTOPRAZOLE SODIUM
     Dosage: 20 MG
     Route: 048
  7. SALMETEROL/FLUTICASON SPRAY [Concomitant]
     Route: 050
  8. FOLSAN 5 MG [Concomitant]
     Dosage: 5 MG, QD
     Route: 048
     Dates: start: 20190624, end: 20190910
  9. CANDESARTAN. [Concomitant]
     Active Substance: CANDESARTAN
     Indication: HYPERTENSION
     Dosage: 8 MG, QD
     Route: 048
     Dates: start: 2019
  10. SALMETEROL/FLUTICASON SPRAY [Concomitant]
     Indication: ASTHMA
     Dosage: UNK
     Route: 050
  11. FOLSAN 5 MG [Concomitant]
     Indication: VITAMIN SUPPLEMENTATION

REACTIONS (17)
  - Dysgeusia [Recovered/Resolved]
  - Anal ulcer [Not Recovered/Not Resolved]
  - Anal abscess [Recovered/Resolved]
  - Tumour pain [Not Recovered/Not Resolved]
  - Flank pain [Recovered/Resolved]
  - Disease progression [Not Recovered/Not Resolved]
  - Skin disorder [Not Recovered/Not Resolved]
  - Anal fissure [Not Recovered/Not Resolved]
  - Pyrexia [Recovered/Resolved]
  - Depression [Not Recovered/Not Resolved]
  - Diarrhoea [Not Recovered/Not Resolved]
  - Neck pain [Not Recovered/Not Resolved]
  - Tinnitus [Recovered/Resolved]
  - Upper respiratory tract infection [Recovered/Resolved]
  - Stress [Not Recovered/Not Resolved]
  - Chronic fatigue syndrome [Not Recovered/Not Resolved]
  - Testicular pain [Not Recovered/Not Resolved]

NARRATIVE: CASE EVENT DATE: 20190624
